FAERS Safety Report 5195575-1 (Version None)
Quarter: 2007Q1

REPORT INFORMATION
  Report Type: 
  Country: None (occurrence: None)
  Receive Date: 20070102
  Receipt Date: 20061221
  Transmission Date: 20070707
  Serious: Yes (Hospitalization)
  Sender: FDA-Public Use
  Company Number: US-BRISTOL-MYERS SQUIBB COMPANY-13562897

PATIENT
  Age: 50 Year
  Sex: Female
  Weight: 63 kg

DRUGS (15)
  1. ERBITUX [Suspect]
     Indication: BREAST CANCER METASTATIC
     Route: 042
     Dates: start: 20060922, end: 20060922
  2. CARBOPLATIN [Suspect]
     Indication: BREAST CANCER METASTATIC
     Route: 042
     Dates: start: 20060922, end: 20060922
  3. TAXOL [Suspect]
     Indication: BREAST CANCER METASTATIC
     Dates: start: 20061017, end: 20061017
  4. IRINOTECAN HCL [Suspect]
     Indication: BREAST CANCER METASTATIC
     Route: 042
     Dates: start: 20060922, end: 20060922
  5. RADIATION THERAPY [Concomitant]
     Indication: BREAST CANCER METASTATIC
  6. ATIVAN [Concomitant]
     Indication: ANXIETY
     Route: 048
  7. LOMOTIL [Concomitant]
     Indication: DIARRHOEA
     Route: 048
  8. COMPAZINE [Concomitant]
     Indication: PROPHYLAXIS OF NAUSEA AND VOMITING
     Route: 048
  9. AMBIEN [Concomitant]
     Route: 048
  10. DECADRON [Concomitant]
     Route: 048
  11. LOZOL [Concomitant]
     Indication: DIURETIC THERAPY
     Route: 048
  12. MAG-OX [Concomitant]
     Route: 048
  13. NORCO [Concomitant]
     Indication: ANALGESIC THERAPY
     Route: 048
  14. ROXICODONE [Concomitant]
     Indication: ANALGESIC THERAPY
     Route: 048
  15. EMEND [Concomitant]
     Indication: PROPHYLAXIS OF NAUSEA AND VOMITING
     Route: 048

REACTIONS (10)
  - ANAEMIA [None]
  - BLOOD GLUCOSE INCREASED [None]
  - DEHYDRATION [None]
  - HYPERTENSION [None]
  - HYPONATRAEMIA [None]
  - HYPOVOLAEMIA [None]
  - MALAISE [None]
  - NAUSEA [None]
  - TACHYCARDIA [None]
  - VOMITING [None]
